FAERS Safety Report 9772985 (Version 1)
Quarter: 2013Q4

REPORT INFORMATION
  Report Type: Spontaneous
  Country: US (occurrence: None)
  Receive Date: 20131218
  Receipt Date: 20131218
  Transmission Date: 20140711
  Serious: Yes (Hospitalization)
  Sender: FDA-Public Use
  Company Number: None

PATIENT
  Age: 62 Year
  Sex: Male
  Weight: 82.3 kg

DRUGS (2)
  1. METHADONE [Suspect]
     Indication: PAIN
     Route: 048
     Dates: start: 20131118, end: 20131123
  2. OXYCODONE [Suspect]
     Indication: PAIN
     Route: 048
     Dates: start: 20131118, end: 20131123

REACTIONS (4)
  - Bradycardia [None]
  - Miosis [None]
  - Somnolence [None]
  - Respiratory depression [None]
